FAERS Safety Report 7053850-X (Version None)
Quarter: 2010Q4

REPORT INFORMATION
  Report Type: 
  Country: None (occurrence: None)
  Receive Date: 20101020
  Receipt Date: 20101011
  Transmission Date: 20110411
  Serious: Yes (Other)
  Sender: FDA-Public Use
  Company Number: PHHY2010US68466

PATIENT
  Sex: Female

DRUGS (2)
  1. EXTAVIA [Suspect]
     Indication: MULTIPLE SCLEROSIS
     Dosage: 0.187 MG, QOD
     Route: 058
  2. METFORMIN HCL [Concomitant]
     Dosage: UNK

REACTIONS (5)
  - ANGER [None]
  - BLOOD GLUCOSE INCREASED [None]
  - IRRITABILITY [None]
  - LIBIDO DECREASED [None]
  - WEIGHT INCREASED [None]
